FAERS Safety Report 16883953 (Version 1)
Quarter: 2019Q4

REPORT INFORMATION
  Report Type: Spontaneous
  Country: US (occurrence: US)
  Receive Date: 20190808
  Receipt Date: 20190808
  Transmission Date: 20200122
  Serious: Yes (Hospitalization)
  Sender: FDA-Public Use
  Company Number: None

PATIENT
  Age: 66 Year
  Sex: Female

DRUGS (10)
  1. CLARITIN [Concomitant]
     Active Substance: LORATADINE
  2. METHOTREXATE. [Concomitant]
     Active Substance: METHOTREXATE
  3. MULTI VITAMIN [Concomitant]
     Active Substance: VITAMINS
  4. VITAMIN D3 [Concomitant]
     Active Substance: CHOLECALCIFEROL
  5. CALTRATE [Concomitant]
     Active Substance: CALCIUM CARBONATE
  6. GABAPENTIN. [Concomitant]
     Active Substance: GABAPENTIN
  7. HUMIRA [Suspect]
     Active Substance: ADALIMUMAB
     Indication: RHEUMATOID ARTHRITIS
     Dosage: ?          OTHER DOSE:40MG/0.4ML;?
     Route: 058
     Dates: start: 20151014
  8. FLONASE [Concomitant]
     Active Substance: FLUTICASONE PROPIONATE
  9. FOLIC ACID. [Concomitant]
     Active Substance: FOLIC ACID
  10. XIIDRA [Concomitant]
     Active Substance: LIFITEGRAST

REACTIONS (2)
  - Therapy cessation [None]
  - Hip arthroplasty [None]

NARRATIVE: CASE EVENT DATE: 20190807
